FAERS Safety Report 19092173 (Version 2)
Quarter: 2021Q2

REPORT INFORMATION
  Report Type: Spontaneous
  Country: DE (occurrence: DE)
  Receive Date: 20210405
  Receipt Date: 20210406
  Transmission Date: 20210717
  Serious: Yes (Hospitalization)
  Sender: FDA-Public Use
  Company Number: DE-ACCORD-221840

PATIENT
  Age: 91 Year
  Sex: Female

DRUGS (12)
  1. METAMIZOL [Concomitant]
     Active Substance: METAMIZOLE SODIUM
     Dosage: 500 MG, AS REQUIRED, TABLET
  2. METHOTREXATE. [Suspect]
     Active Substance: METHOTREXATE
     Indication: PRODUCT USED FOR UNKNOWN INDICATION
     Dosage: 15 MG / WEEK, 1X WEDNESDAY, TABLETS
  3. LORMETAZEPAM [Concomitant]
     Active Substance: LORMETAZEPAM
     Dosage: 7.5 MG, 0?0?1?0, TABLET
  4. PRADAXA [Concomitant]
     Active Substance: DABIGATRAN ETEXILATE MESYLATE
     Dosage: 110 MG, 1?0?1?0, CAPSULE
  5. FERRO SANOL [Concomitant]
     Active Substance: FERROUS GLYCINE SULFATE
     Dosage: DUODENAL 100MG,100 MG, 0?1?0?0, CAPSULE
  6. LACTULOSE. [Concomitant]
     Active Substance: LACTULOSE
     Dosage: AS REQUIRED, SYRUP
  7. FOLIC ACID. [Concomitant]
     Active Substance: FOLIC ACID
     Dosage: 5 MG, 0?0?1?0, TABLET
  8. VIGANTOLETTEN [Concomitant]
     Active Substance: CHOLECALCIFEROL
     Dosage: 1000 IU, 1?0?0?0, TABLET
  9. LOPERAMID [Concomitant]
     Active Substance: LOPERAMIDE
     Dosage: AS REQUIRED, TABLET
  10. SIMVASTATIN. [Concomitant]
     Active Substance: SIMVASTATIN
     Dosage: 40 MG, 0?0?1?0, TABLET
  11. LOSARTAN/LOSARTAN POTASSIUM [Concomitant]
     Active Substance: LOSARTAN
     Dosage: AS REQUIRED, TABLET
  12. PANTOPRAZOLE [Concomitant]
     Active Substance: PANTOPRAZOLE
     Dosage: 40 MG, 1?0?0?0, TABLET

REACTIONS (1)
  - Fracture [Unknown]

NARRATIVE: CASE EVENT DATE: 20201031
